FAERS Safety Report 8220633-4 (Version None)
Quarter: 2012Q1

REPORT INFORMATION
  Report Type: 
  Country: None (occurrence: None)
  Receive Date: 20120320
  Receipt Date: 20120312
  Transmission Date: 20120608
  Serious: Yes (Disabling)
  Sender: FDA-Public Use
  Company Number: JP-ASTELLAS-2012JP002346

PATIENT
  Sex: Male

DRUGS (4)
  1. MYCOPHENOLATE MOFETIL (CELLCEPT) [Concomitant]
     Route: 065
  2. DEPAS [Interacting]
     Dosage: 2 DF, PRN
     Route: 048
  3. PROGRAF [Suspect]
     Indication: RENAL TRANSPLANT
     Dosage: UNK
     Route: 041
  4. STEROID [Concomitant]
     Route: 065

REACTIONS (2)
  - LOSS OF CONSCIOUSNESS [None]
  - DRUG INTERACTION [None]
